FAERS Safety Report 5639453-X (Version None)
Quarter: 2008Q1

REPORT INFORMATION
  Report Type: 
  Country: None (occurrence: None)
  Receive Date: 20080222
  Receipt Date: 20080213
  Transmission Date: 20080703
  Serious: Yes (Hospitalization, Disabling, Other)
  Sender: FDA-Public Use
  Company Number: 163-21880-06080464

PATIENT
  Age: 64 Year
  Sex: Male

DRUGS (12)
  1. REVLIMID [Suspect]
     Indication: MULTIPLE MYELOMA
     Dosage: 10 MG, 1 IN 1 D, ORAL; 5MG, 1IN 1D, ORAL; 2.5 MG, 1 IN 2 D, ORAL
     Route: 048
     Dates: start: 20060803, end: 20060822
  2. REVLIMID [Suspect]
     Indication: MULTIPLE MYELOMA
     Dosage: 10 MG, 1 IN 1 D, ORAL; 5MG, 1IN 1D, ORAL; 2.5 MG, 1 IN 2 D, ORAL
     Route: 048
     Dates: start: 20060929, end: 20061012
  3. REVLIMID [Suspect]
     Indication: MULTIPLE MYELOMA
     Dosage: 10 MG, 1 IN 1 D, ORAL; 5MG, 1IN 1D, ORAL; 2.5 MG, 1 IN 2 D, ORAL
     Route: 048
     Dates: start: 20070404
  4. MELPHALAN (MELPHALAN) [Suspect]
     Indication: MULTIPLE MYELOMA
     Dosage: 0.18 MG/KG, X 4D, MONTHLY
     Dates: start: 20060804
  5. DEXAMETHASONE [Concomitant]
  6. ZOMETA [Concomitant]
  7. PLAVIX (CLOPTDOGREL SULFATE)(75 MILLIGRAM) [Concomitant]
  8. PEPCID AC [Concomitant]
  9. CIPRO (CIPROFLOXACIN) (250 MILLIGRAM) [Concomitant]
  10. ALLOPURINOL [Concomitant]
  11. PERCOCET [Concomitant]
  12. ALKERAN [Concomitant]

REACTIONS (30)
  - ABDOMINAL PAIN [None]
  - ABDOMINAL PAIN UPPER [None]
  - ANOREXIA [None]
  - ASTHENIA [None]
  - BACK PAIN [None]
  - BLOOD CREATININE INCREASED [None]
  - BLOOD PRESSURE DIASTOLIC DECREASED [None]
  - BLOOD UREA INCREASED [None]
  - BONE LESION [None]
  - DEHYDRATION [None]
  - DRUG INTOLERANCE [None]
  - DYSGEUSIA [None]
  - DYSPHONIA [None]
  - DYSPNOEA [None]
  - FATIGUE [None]
  - FLUID INTAKE REDUCED [None]
  - GAIT DISTURBANCE [None]
  - HAEMOGLOBIN DECREASED [None]
  - HEART RATE IRREGULAR [None]
  - HYPERTENSION [None]
  - MUSCLE SPASMS [None]
  - MUSCULOSKELETAL PAIN [None]
  - NAUSEA [None]
  - PAIN [None]
  - PYREXIA [None]
  - RED BLOOD CELL COUNT DECREASED [None]
  - SYNCOPE [None]
  - TACHYCARDIA [None]
  - TREMOR [None]
  - WHITE BLOOD CELL COUNT DECREASED [None]
